FAERS Safety Report 13636314 (Version 2)
Quarter: 2017Q2

REPORT INFORMATION
  Report Type: Report from Study
  Country: JP (occurrence: JP)
  Receive Date: 20170609
  Receipt Date: 20170615
  Transmission Date: 20170830
  Serious: Yes (Hospitalization)
  Sender: FDA-Public Use
  Company Number: JP-AMGEN-JPNCT2017087733

PATIENT
  Age: 84 Year
  Sex: Male
  Weight: 77 kg

DRUGS (21)
  1. DARBEPOETIN ALFA [Suspect]
     Active Substance: DARBEPOETIN ALFA
     Dosage: 30 MUG, UNK
     Route: 065
     Dates: start: 20150512
  2. PRAVASTATIN. [Concomitant]
     Active Substance: PRAVASTATIN
     Indication: DYSLIPIDAEMIA
     Dosage: 5 MG, QD
     Route: 048
  3. FEBURIC [Concomitant]
     Active Substance: FEBUXOSTAT
     Indication: HYPERURICAEMIA
     Dosage: 10 MG, QD
     Route: 048
  4. JUSO [Concomitant]
     Active Substance: SODIUM BICARBONATE
     Indication: METABOLIC ACIDOSIS
     Dosage: 500 MG, TID
     Route: 048
  5. TRYPTANOL [Concomitant]
     Active Substance: AMITRIPTYLINE
     Indication: DEPRESSIVE SYMPTOM
     Dosage: 10 MG, QD
     Route: 048
  6. DARBEPOETIN ALFA [Suspect]
     Active Substance: DARBEPOETIN ALFA
     Indication: PRODUCT USED FOR UNKNOWN INDICATION
     Dosage: 30 MUG, UNK
     Route: 065
     Dates: start: 20140901
  7. CALONAL [Concomitant]
     Active Substance: ACETAMINOPHEN
     Indication: HYPERTENSION
     Dosage: 200 MG, TID
     Route: 048
  8. NORVASC [Concomitant]
     Active Substance: AMLODIPINE BESYLATE
     Indication: HYPERTENSION
     Dosage: 0.5 DF, QD
     Route: 048
  9. KALIMATE [Concomitant]
     Active Substance: CALCIUM POLYSTYRENE SULFONATE
     Indication: HYPERKALAEMIA
     Dosage: 1 DF, QOD
     Route: 048
  10. SOLON [Concomitant]
     Active Substance: SOFALCONE
     Indication: PROPHYLAXIS AGAINST GASTROINTESTINAL ULCER
     Dosage: 50 MG, TID
     Route: 048
  11. DOXAZOSIN [Concomitant]
     Active Substance: DOXAZOSIN\DOXAZOSIN MESYLATE
     Indication: HYPERTENSION
     Dosage: 2 MG, QD
     Route: 048
  12. TERNELIN [Concomitant]
     Active Substance: TIZANIDINE
     Indication: BACK PAIN
     Dosage: 1 MG, TID
     Route: 048
  13. ISOSORBIDE DINITRATE. [Concomitant]
     Active Substance: ISOSORBIDE DINITRATE
     Indication: BACK PAIN
     Dosage: 0.5 DF, UNK
     Route: 062
  14. MICARDIS [Concomitant]
     Active Substance: TELMISARTAN
     Indication: HYPERTENSION
     Dosage: 40 MG, QD
     Route: 048
  15. FLUITRAN [Concomitant]
     Active Substance: TRICHLORMETHIAZIDE
     Indication: HYPERTENSION
     Dosage: 2 MG, QD
     Route: 048
  16. TERNELIN [Concomitant]
     Active Substance: TIZANIDINE
     Indication: BACK PAIN
  17. SOLON [Concomitant]
     Active Substance: SOFALCONE
     Indication: PROPHYLAXIS AGAINST GASTROINTESTINAL ULCER
  18. ODYNE [Concomitant]
     Active Substance: FLUTAMIDE
     Indication: PROSTATE CANCER
     Dosage: 125 MG, BID
     Route: 048
  19. ISOSORBIDE DINITRATE. [Concomitant]
     Active Substance: ISOSORBIDE DINITRATE
     Indication: BACK PAIN
  20. FERROSTEC [Concomitant]
     Active Substance: SODIUM FERROUS CITRATE
     Indication: ANAEMIA
     Dosage: 50 MG, QWK
     Route: 048
  21. CERCINE [Concomitant]
     Active Substance: DIAZEPAM
     Indication: DEPRESSIVE SYMPTOM
     Dosage: 2 MG, TID
     Route: 048

REACTIONS (1)
  - Orchidectomy [Recovering/Resolving]

NARRATIVE: CASE EVENT DATE: 20150611
